FAERS Safety Report 8811499 (Version 2)
Quarter: 2012Q4

REPORT INFORMATION
  Report Type: 
  Country: DE (occurrence: DE)
  Receive Date: 20120927
  Receipt Date: 20121008
  Transmission Date: 20130627
  Serious: Yes (Hospitalization)
  Sender: FDA-Public Use
  Company Number: DE-RANBAXY-2012RR-60524

PATIENT
  Age: 32 Year
  Sex: Male

DRUGS (3)
  1. FLECAINIDE [Suspect]
     Indication: VENTRICULAR ARRHYTHMIA
     Dosage: UNK
     Route: 065
  2. CIPROFLOXACIN [Interacting]
     Indication: URINARY TRACT INFECTION
     Dosage: 250 mg, bid
     Route: 048
  3. CEFTRIAXONE [Interacting]
     Indication: URINARY TRACT INFECTION
     Dosage: UNK
     Route: 065

REACTIONS (2)
  - Torsade de pointes [Recovered/Resolved]
  - Drug interaction [Recovered/Resolved]
